FAERS Safety Report 7499225-0 (Version None)
Quarter: 2011Q2

REPORT INFORMATION
  Report Type: 
  Country: None (occurrence: None)
  Receive Date: 20110524
  Receipt Date: 20110516
  Transmission Date: 20111010
  Serious: Yes (Death, Hospitalization, Other)
  Sender: FDA-Public Use
  Company Number: DE-GENZYME-FLUD-1000305

PATIENT
  Age: 8 Year
  Sex: Male

DRUGS (9)
  1. GRANULOCYTE COLONY STIMULATING FACTOR [Suspect]
     Indication: ACUTE MYELOID LEUKAEMIA
     Dosage: 400 MCG/M2, QD STARTING ON DAY 0 UNTIL DAY ABSOLUTE NEUTROPHILL COUNT WAS GREATER THAN 1.0 X 10E9//L
     Route: 065
  2. IDARUBICIN HCL [Suspect]
     Indication: ACUTE MYELOID LEUKAEMIA
     Dosage: 12 MG/M2, QDX3 ON DAY 2 - DAY 4
     Route: 042
  3. TRIMETHOPRIM + SULFAMETHOXAZOLE [Concomitant]
     Indication: ANTIBIOTIC PROPHYLAXIS
     Dosage: 5 MG/KG, QD
     Route: 065
  4. CORTICOSTEROIDS [Concomitant]
     Indication: PRODUCT USED FOR UNKNOWN INDICATION
     Dosage: UNK
     Route: 065
  5. FLUDARA [Suspect]
     Indication: ACUTE MYELOID LEUKAEMIA
     Dosage: 30 MG/M2, QDX4 ON DAY 1 - DAY 4
     Route: 042
  6. CYTARABINE [Suspect]
     Indication: ACUTE MYELOID LEUKAEMIA
     Dosage: 2000 MG/M2, QDX4 ON DAY 1 - DAY 4
     Route: 042
  7. ANTIEMETICS AND ANTINAUSEANTS [Concomitant]
     Indication: PRODUCT USED FOR UNKNOWN INDICATION
     Dosage: UNK
     Route: 065
  8. FLUCONAZOLE [Concomitant]
     Indication: ANTIFUNGAL PROPHYLAXIS
     Dosage: 3 MG/KG, QD
     Route: 065
  9. CHEMOTHERAPEUTICS NOS [Concomitant]
     Indication: ACUTE MYELOID LEUKAEMIA
     Dosage: UNK
     Route: 065

REACTIONS (4)
  - SERRATIA INFECTION [None]
  - MUCOSAL INFLAMMATION [None]
  - FEBRILE NEUTROPENIA [None]
  - BRONCHOPULMONARY ASPERGILLOSIS [None]
